FAERS Safety Report 25078900 (Version 2)
Quarter: 2025Q1

REPORT INFORMATION
  Report Type: Report from Study
  Country: ES (occurrence: ES)
  Receive Date: 20250314
  Receipt Date: 20250319
  Transmission Date: 20250409
  Serious: Yes (Hospitalization, Other)
  Sender: NOVARTIS
  Company Number: ES-002147023-NVSC2025ES039432

PATIENT
  Age: 2 Year
  Sex: Female
  Weight: 11 kg

DRUGS (9)
  1. PIQRAY [Suspect]
     Active Substance: ALPELISIB
     Indication: Ascites
     Dosage: 50 MG, QD
     Route: 048
     Dates: start: 20250123
  2. PIQRAY [Suspect]
     Active Substance: ALPELISIB
     Indication: Protein-losing gastroenteropathy
     Dosage: 25 MG, QD
     Route: 048
     Dates: end: 20250305
  3. PIQRAY [Suspect]
     Active Substance: ALPELISIB
     Indication: Lymphoedema
  4. BEMIPARIN [Concomitant]
     Active Substance: BEMIPARIN
     Indication: Product used for unknown indication
     Route: 065
  5. VITAMIN D [Concomitant]
     Active Substance: VITAMIN D NOS
     Indication: Product used for unknown indication
     Route: 065
  6. SPIRONOLACTONE [Concomitant]
     Active Substance: SPIRONOLACTONE
     Indication: Product used for unknown indication
     Route: 065
  7. FUROSEMIDE [Concomitant]
     Active Substance: FUROSEMIDE
     Indication: Product used for unknown indication
     Route: 065
  8. CALCIUM [Concomitant]
     Active Substance: CALCIUM
     Indication: Product used for unknown indication
     Route: 065
  9. SIROLIMUS [Concomitant]
     Active Substance: SIROLIMUS
     Indication: Product used for unknown indication
     Dosage: 0.1 ML, Q48H
     Route: 065
     Dates: start: 202312

REACTIONS (6)
  - Diarrhoea [Recovering/Resolving]
  - Metabolic acidosis [Unknown]
  - Electrolyte imbalance [Unknown]
  - Syncope [Unknown]
  - Dizziness [Unknown]
  - Abdominal distension [Unknown]

NARRATIVE: CASE EVENT DATE: 20250124
